FAERS Safety Report 18265517 (Version 3)
Quarter: 2020Q4

REPORT INFORMATION
  Report Type: Spontaneous
  Country: HR (occurrence: HR)
  Receive Date: 20200914
  Receipt Date: 20201027
  Transmission Date: 20210113
  Serious: Yes (Hospitalization)
  Sender: FDA-Public Use
  Company Number: HR-009507513-2009HRV003952

PATIENT
  Age: 57 Year
  Sex: Male

DRUGS (5)
  1. PREGABALIN. [Concomitant]
     Active Substance: PREGABALIN
  2. KEYTRUDA [Suspect]
     Active Substance: PEMBROLIZUMAB
     Indication: NON-SMALL CELL LUNG CANCER METASTATIC
     Dosage: 200 MILLIGRAM
     Route: 042
     Dates: start: 20200824
  3. VELAFAX [Concomitant]
     Active Substance: VENLAFAXINE HYDROCHLORIDE
  4. PROSURE [Concomitant]
     Dosage: NUTRITIONAL SUPPLEMENT
  5. NORMABEL [Concomitant]
     Active Substance: DIAZEPAM

REACTIONS (3)
  - Rash maculo-papular [Not Recovered/Not Resolved]
  - Adverse event [Recovering/Resolving]
  - Mucosal inflammation [Unknown]

NARRATIVE: CASE EVENT DATE: 2020
